FAERS Safety Report 5377053-X (Version None)
Quarter: 2007Q2

REPORT INFORMATION
  Report Type: 
  Country: None (occurrence: None)
  Receive Date: 20070628
  Receipt Date: 20070628
  Transmission Date: 20071010
  Serious: Yes (Other)
  Sender: FDA-Public Use
  Company Number: None

PATIENT
  Age: 18 Year
  Sex: Female
  Weight: 50.3 kg

DRUGS (4)
  1. LINEZOLID [Suspect]
     Indication: ABSCESS
     Dosage: 600 MG TWICE DAILY PO
     Route: 048
  2. LINEZOLID [Suspect]
     Indication: MYCOBACTERIAL INFECTION
     Dosage: 600 MG TWICE DAILY PO
     Route: 048
  3. TIGECYCLINE [Concomitant]
  4. CEFOXITIN [Concomitant]

REACTIONS (7)
  - DRUG TOXICITY [None]
  - HEADACHE [None]
  - OPTIC NEURITIS [None]
  - PAPILLOEDEMA [None]
  - SCOTOMA [None]
  - TINNITUS [None]
  - VISUAL FIELD DEFECT [None]
